FAERS Safety Report 8433286-7 (Version None)
Quarter: 2012Q2

REPORT INFORMATION
  Report Type: 
  Country: None (occurrence: None)
  Receive Date: 20120613
  Receipt Date: 20120606
  Transmission Date: 20120825
  Serious: Yes (Death, Hospitalization)
  Sender: FDA-Public Use
  Company Number: DE-ROCHE-787764

PATIENT
  Sex: Male
  Weight: 50 kg

DRUGS (5)
  1. AVASTIN [Suspect]
     Indication: NON-SMALL CELL LUNG CANCER
     Dosage: INFUSION OVER 90 MIN
     Route: 042
     Dates: start: 20110505, end: 20110505
  2. DEXAMETHASONE [Concomitant]
     Route: 042
     Dates: start: 20110505, end: 20110505
  3. FENISTIL [Concomitant]
     Indication: PREMEDICATION
     Route: 042
     Dates: start: 20110505, end: 20110505
  4. CLEMASTINE FUMARATE [Concomitant]
     Indication: PREMEDICATION
     Route: 042
     Dates: start: 20110505, end: 20110505
  5. PACLITAXEL [Concomitant]
     Indication: NON-SMALL CELL LUNG CANCER
     Route: 042
     Dates: start: 20110505, end: 20110505

REACTIONS (3)
  - PULMONARY HAEMORRHAGE [None]
  - HAEMOPTYSIS [None]
  - TUMOUR NECROSIS [None]
